FAERS Safety Report 12707307 (Version 1)
Quarter: 2016Q3

REPORT INFORMATION
  Report Type: Spontaneous
  Country: US (occurrence: US)
  Receive Date: 20160901
  Receipt Date: 20160901
  Transmission Date: 20161109
  Serious: No
  Sender: FDA-Public Use
  Company Number: US-THE MEDICINES COMPANY-US-MDCO-16-00224

PATIENT
  Age: 31 Year
  Sex: Female

DRUGS (11)
  1. ORBACTIV [Suspect]
     Active Substance: ORITAVANCIN
  2. DAPTOMYCIN. [Concomitant]
     Active Substance: DAPTOMYCIN
     Indication: PRODUCT USED FOR UNKNOWN INDICATION
     Dosage: NOT REPORTED
     Route: 041
  3. ORBACTIV [Suspect]
     Active Substance: ORITAVANCIN
     Indication: ABSCESS
  4. ORBACTIV [Suspect]
     Active Substance: ORITAVANCIN
  5. ORBACTIV [Suspect]
     Active Substance: ORITAVANCIN
  6. ORBACTIV [Suspect]
     Active Substance: ORITAVANCIN
     Indication: ARTHRITIS BACTERIAL
  7. ORBACTIV [Suspect]
     Active Substance: ORITAVANCIN
  8. ORBACTIV [Suspect]
     Active Substance: ORITAVANCIN
  9. ORBACTIV [Suspect]
     Active Substance: ORITAVANCIN
  10. ORBACTIV [Suspect]
     Active Substance: ORITAVANCIN
     Indication: OSTEOMYELITIS
  11. ORBACTIV [Suspect]
     Active Substance: ORITAVANCIN

REACTIONS (2)
  - Off label use [Unknown]
  - No adverse event [Unknown]
